FAERS Safety Report 4507659-9 (Version None)
Quarter: 2004Q4

REPORT INFORMATION
  Report Type: 
  Country: None (occurrence: None)
  Receive Date: 20041123
  Receipt Date: 20041015
  Transmission Date: 20050328
  Serious: Yes (Death, Other)
  Sender: FDA-Public Use
  Company Number: JP-BRISTOL-MYERS SQUIBB COMPANY-12732947

PATIENT
  Age: 46 Year
  Sex: Male

DRUGS (11)
  1. TAXOL [Suspect]
     Indication: LUNG NEOPLASM MALIGNANT
     Route: 042
     Dates: start: 20030909, end: 20031021
  2. PARAPLATIN [Suspect]
     Indication: LUNG NEOPLASM MALIGNANT
     Dosage: AUC 1.25
     Route: 042
     Dates: start: 20030909, end: 20031021
  3. DEXAMETHASONE SODIUM PHOSPHATE [Concomitant]
     Route: 042
     Dates: start: 20030909, end: 20031021
  4. HYDROXYZINE HCL [Concomitant]
     Route: 042
     Dates: start: 20030909, end: 20031021
  5. FAMOTIDINE [Concomitant]
     Route: 042
     Dates: start: 20030909, end: 20031021
  6. BEZAFIBRATE [Concomitant]
  7. ALLYLESTRENOL [Concomitant]
  8. NAFTOPIDIL [Concomitant]
  9. MAGNESIUM OXIDE [Concomitant]
  10. L-CARBOCISTEINE [Concomitant]
  11. CHINESE HERBS [Concomitant]
     Route: 048

REACTIONS (5)
  - ANAEMIA [None]
  - INTERSTITIAL LUNG DISEASE [None]
  - LUNG NEOPLASM MALIGNANT [None]
  - PLATELET COUNT DECREASED [None]
  - WHITE BLOOD CELL COUNT DECREASED [None]
